FAERS Safety Report 18881581 (Version 2)
Quarter: 2021Q1

REPORT INFORMATION
  Report Type: Spontaneous
  Country: HR (occurrence: HR)
  Receive Date: 20210212
  Receipt Date: 20210303
  Transmission Date: 20210420
  Serious: Yes (Hospitalization, Other)
  Sender: FDA-Public Use
  Company Number: HR-GILEAD-2021-0516477

PATIENT
  Age: 61 Year
  Sex: Male
  Weight: 80 kg

DRUGS (10)
  1. NOVOMIX [Concomitant]
     Active Substance: INSULIN ASPART
  2. EDEMID [Concomitant]
     Active Substance: FUROSEMIDE
  3. SIOFOR [Concomitant]
     Active Substance: METFORMIN HYDROCHLORIDE
  4. PHYSIOTENS [Concomitant]
     Active Substance: MOXONIDINE
  5. ALOPURINOL [Concomitant]
     Active Substance: ALLOPURINOL
  6. EPCLUSA [Suspect]
     Active Substance: SOFOSBUVIR\VELPATASVIR
     Indication: CHRONIC HEPATITIS C
     Dosage: UNK
     Route: 048
     Dates: start: 20201218
  7. CO PERINEVA [Concomitant]
     Active Substance: INDAPAMIDE\PERINDOPRIL ERBUMINE
  8. CONTROLOC [Concomitant]
     Active Substance: PANTOPRAZOLE SODIUM
  9. EPCLUSA [Suspect]
     Active Substance: SOFOSBUVIR\VELPATASVIR
     Indication: HEPATIC CIRRHOSIS
  10. PROPRANOLOL [Concomitant]
     Active Substance: PROPRANOLOL HYDROCHLORIDE

REACTIONS (10)
  - Exfoliative rash [Recovering/Resolving]
  - Nephritis [Recovering/Resolving]
  - Azotaemia [Recovering/Resolving]
  - Eosinophilia [Recovered/Resolved]
  - Eosinophilia [Recovering/Resolving]
  - Pneumonitis [Recovering/Resolving]
  - Dermatitis [Unknown]
  - Interstitial lung disease [Unknown]
  - Rash [Recovering/Resolving]
  - Nephritis [Recovering/Resolving]

NARRATIVE: CASE EVENT DATE: 20210120
